FAERS Safety Report 10231515 (Version 2)
Quarter: 2014Q2

REPORT INFORMATION
  Report Type: Spontaneous
  Country: US (occurrence: US)
  Receive Date: 20140611
  Receipt Date: 20140611
  Transmission Date: 20141212
  Serious: No
  Sender: FDA-Public Use
  Company Number: US-MYLANLABS-2013S1026016

PATIENT
  Age: 49 Year
  Sex: Female

DRUGS (3)
  1. VALACYCLOVIR TABLETS [Suspect]
     Indication: HERPES OPHTHALMIC
     Dates: start: 20131112
  2. VITAMIN D [Concomitant]
  3. LEVOTHYROXINE [Concomitant]

REACTIONS (1)
  - Eye irritation [Recovered/Resolved]
